FAERS Safety Report 4947858-5 (Version None)
Quarter: 2006Q1

REPORT INFORMATION
  Report Type: 
  Country: None (occurrence: None)
  Receive Date: 20060313
  Receipt Date: 20060227
  Transmission Date: 20060701
  Serious: Yes (Hospitalization)
  Sender: FDA-Public Use
  Company Number: GXKR2006FR01345

PATIENT
  Age: 39 Year
  Sex: Female

DRUGS (3)
  1. IBUPROFEN [Suspect]
     Indication: NECK PAIN
     Dosage: 1.2 G, ORAL
     Route: 048
     Dates: start: 20051122, end: 20051129
  2. TETRAZEPAM (TETRAZEPAM) [Concomitant]
  3. SRILANE (IDROCILAMIDE) [Concomitant]

REACTIONS (16)
  - ANAEMIA [None]
  - DIARRHOEA [None]
  - DUODENITIS [None]
  - ENTEROBACTER SEPSIS [None]
  - EROSIVE OESOPHAGITIS [None]
  - GASTRITIS [None]
  - HYPOTENSION [None]
  - ILEITIS [None]
  - INTESTINAL ULCER [None]
  - LEUKOPENIA [None]
  - MALAISE [None]
  - NEUTROPENIA [None]
  - PYREXIA [None]
  - RECTAL HAEMORRHAGE [None]
  - VOMITING [None]
  - WEIGHT DECREASED [None]
